FAERS Safety Report 5170436-2 (Version None)
Quarter: 2006Q4

REPORT INFORMATION
  Report Type: 
  Country: None (occurrence: None)
  Receive Date: 20061204
  Receipt Date: 20061123
  Transmission Date: 20070319
  Serious: Yes (Other)
  Sender: FDA-Public Use
  Company Number: S06-SWI-04297-01

PATIENT
  Age: 34 Year
  Sex: Male

DRUGS (3)
  1. CIPRALEX                    (ESCITALOPRAM) [Suspect]
     Indication: DEPRESSION
     Dosage: 10 MG QD PO
     Route: 048
     Dates: start: 20040601, end: 20060613
  2. LAMICTAL [Concomitant]
  3. LORAZEPAM [Concomitant]

REACTIONS (3)
  - ANGIONEUROTIC OEDEMA [None]
  - TYPE II HYPERSENSITIVITY [None]
  - URTICARIA [None]
